FAERS Safety Report 17424690 (Version 1)
Quarter: 2020Q1

REPORT INFORMATION
  Report Type: Other
  Country: GB (occurrence: GB)
  Receive Date: 20200217
  Receipt Date: 20200217
  Transmission Date: 20200409
  Serious: Yes (Other)
  Sender: FDA-Public Use
  Company Number: GB-GLENMARK PHARMACEUTICALS-2020GMK046119

PATIENT

DRUGS (1)
  1. GABAPENTIN. [Suspect]
     Active Substance: GABAPENTIN
     Indication: BACK PAIN
     Dosage: UNK
     Route: 065
     Dates: start: 20200117, end: 20200121

REACTIONS (11)
  - Abnormal behaviour [Unknown]
  - Amnesia [Unknown]
  - Hypoaesthesia oral [Not Recovered/Not Resolved]
  - Hypoaesthesia oral [Unknown]
  - Aphasia [Unknown]
  - Loss of consciousness [Unknown]
  - Swelling face [Not Recovered/Not Resolved]
  - Nausea [Unknown]
  - Fall [Unknown]
  - Paraesthesia oral [Unknown]
  - Mental impairment [Unknown]

NARRATIVE: CASE EVENT DATE: 202001
